FAERS Safety Report 9397078 (Version 1)
Quarter: 2013Q3

REPORT INFORMATION
  Report Type: Spontaneous
  Country: US (occurrence: US)
  Receive Date: 20130712
  Receipt Date: 20130712
  Transmission Date: 20140515
  Serious: No
  Sender: FDA-Public Use
  Company Number: US-PFIZER INC-2013202876

PATIENT
  Sex: 0

DRUGS (7)
  1. DOXYCYCLINE HYCLATE [Suspect]
     Dosage: UNK
  2. ERYTHROMYCIN [Suspect]
     Dosage: UNK
  3. DILANTIN [Suspect]
     Dosage: UNK
  4. LIORESAL [Suspect]
     Dosage: UNK
  5. CODEINE [Suspect]
     Dosage: UNK
  6. TEGRETOL [Suspect]
     Dosage: UNK
  7. LORCET [Suspect]
     Dosage: UNK

REACTIONS (1)
  - Drug hypersensitivity [Unknown]
